FAERS Safety Report 25469792 (Version 1)
Quarter: 2025Q2

REPORT INFORMATION
  Report Type: Spontaneous
  Country: FR (occurrence: FR)
  Receive Date: 20250623
  Receipt Date: 20250623
  Transmission Date: 20250717
  Serious: Yes (Other)
  Sender: ABBVIE
  Company Number: FR-ABBVIE-6338565

PATIENT
  Age: 72 Year
  Sex: Male

DRUGS (2)
  1. VENETOCLAX [Suspect]
     Active Substance: VENETOCLAX
     Indication: VEXAS syndrome
     Route: 048
  2. AZACITIDINE [Suspect]
     Active Substance: AZACITIDINE
     Indication: VEXAS syndrome
     Route: 065

REACTIONS (4)
  - Acute myeloid leukaemia [Unknown]
  - Drug ineffective for unapproved indication [Unknown]
  - Drug resistance [Unknown]
  - Off label use [Unknown]
